FAERS Safety Report 23771243 (Version 3)
Quarter: 2025Q3

REPORT INFORMATION
  Report Type: Spontaneous
  Country: JP (occurrence: JP)
  Receive Date: 20240423
  Receipt Date: 20250803
  Transmission Date: 20251020
  Serious: Yes (Other)
  Sender: ALEXION PHARMACEUTICALS
  Company Number: JP-AstraZeneca-CH-00607642A

PATIENT

DRUGS (2)
  1. ULTOMIRIS [Suspect]
     Active Substance: RAVULIZUMAB-CWVZ
     Indication: Myasthenia gravis
     Dosage: UNK, Q8W
  2. PREDNISOLONE [Suspect]
     Active Substance: PREDNISOLONE
     Route: 065

REACTIONS (3)
  - Bacteraemia [Recovered/Resolved]
  - Urinary tract infection [Unknown]
  - Decreased immune responsiveness [Unknown]

NARRATIVE: CASE EVENT DATE: 20240416
